FAERS Safety Report 12177137 (Version 6)
Quarter: 2017Q1

REPORT INFORMATION
  Report Type: Spontaneous
  Country: JP (occurrence: JP)
  Receive Date: 20160314
  Receipt Date: 20170329
  Transmission Date: 20170428
  Serious: Yes (Hospitalization)
  Sender: FDA-Public Use
  Company Number: PHJP2016JP005193

PATIENT
  Age: 11 Year
  Sex: Female

DRUGS (2)
  1. ILARIS [Suspect]
     Active Substance: CANAKINUMAB
     Indication: MUCKLE-WELLS SYNDROME
     Dosage: 150 MG, UNK
     Route: 058
     Dates: start: 20091205
  2. ILARIS [Suspect]
     Active Substance: CANAKINUMAB
     Dosage: 150 MG, UNK
     Route: 058
     Dates: start: 20120418

REACTIONS (2)
  - Abdominal mass [Recovered/Resolved]
  - Lipoma [Recovered/Resolved]

NARRATIVE: CASE EVENT DATE: 20150209
